FAERS Safety Report 5954146-7 (Version None)
Quarter: 2008Q4

REPORT INFORMATION
  Report Type: 
  Country: None (occurrence: None)
  Receive Date: 20081117
  Receipt Date: 20081111
  Transmission Date: 20090506
  Serious: Yes (Hospitalization)
  Sender: FDA-Public Use
  Company Number: FR-JNJFOC-20080805950

PATIENT
  Age: 71 Year
  Sex: Male

DRUGS (4)
  1. OFLOCET [Suspect]
     Indication: LUNG DISORDER
     Route: 048
  2. KEPPRA [Suspect]
     Indication: EPILEPSY
     Route: 048
  3. ROCEPHIN [Suspect]
     Indication: LUNG DISORDER
     Route: 065
  4. FUNGIZONE [Suspect]
     Indication: DRUG USE FOR UNKNOWN INDICATION
     Route: 048

REACTIONS (2)
  - EOSINOPHILIA [None]
  - RASH PAPULAR [None]
